FAERS Safety Report 15095718 (Version 1)
Quarter: 2018Q3

REPORT INFORMATION
  Report Type: Spontaneous
  Country: US (occurrence: US)
  Receive Date: 20180702
  Receipt Date: 20180702
  Transmission Date: 20181010
  Serious: No
  Sender: FDA-Public Use
  Company Number: US-BRISTOL-MYERS SQUIBB COMPANY-BMS-2018-053157

PATIENT
  Sex: Female

DRUGS (1)
  1. KENALOG?40 [Suspect]
     Active Substance: TRIAMCINOLONE ACETONIDE
     Indication: PRODUCT USED FOR UNKNOWN INDICATION
     Dosage: UNAVAILABLE
     Route: 050
     Dates: start: 20180516

REACTIONS (7)
  - Dyspnoea [Unknown]
  - Flushing [Unknown]
  - Off label use [Unknown]
  - Aggression [Unknown]
  - Aphonia [Unknown]
  - Pain [Unknown]
  - Swelling [Unknown]
